FAERS Safety Report 9595886 (Version 1)
Quarter: 2013Q4

REPORT INFORMATION
  Report Type: Spontaneous
  Country: JP (occurrence: JP)
  Receive Date: 20131004
  Receipt Date: 20131004
  Transmission Date: 20140711
  Serious: Yes (Other)
  Sender: FDA-Public Use
  Company Number: PHHY2013JP109397

PATIENT
  Sex: Male

DRUGS (1)
  1. TASIGNA [Suspect]
     Indication: CHRONIC MYELOID LEUKAEMIA
     Route: 048

REACTIONS (6)
  - VIIth nerve paralysis [Unknown]
  - Pancreatic disorder [Unknown]
  - Facial neuralgia [Unknown]
  - Glossodynia [Unknown]
  - Pharyngeal hypoaesthesia [Unknown]
  - Pain [Unknown]
